FAERS Safety Report 4751154-9 (Version None)
Quarter: 2005Q3

REPORT INFORMATION
  Report Type: 
  Country: None (occurrence: None)
  Receive Date: 20050824
  Receipt Date: 20050817
  Transmission Date: 20060218
  Serious: Yes (Hospitalization)
  Sender: FDA-Public Use
  Company Number: IT-BRACCO-BCM-000926

PATIENT
  Sex: Female

DRUGS (11)
  1. IOPAMIRO [Suspect]
     Route: 013
     Dates: start: 20050810, end: 20050810
  2. IOPAMIRO [Suspect]
     Indication: SUBARACHNOID HAEMORRHAGE
     Route: 013
     Dates: start: 20050810, end: 20050810
  3. IOPAMIRO [Suspect]
     Route: 013
     Dates: start: 20050810, end: 20050810
  4. HEPARIN [Concomitant]
     Route: 050
     Dates: start: 20050810, end: 20050810
  5. TORADOL [Concomitant]
     Route: 048
  6. NIMOTOP [Concomitant]
     Route: 048
  7. UGUROL [Concomitant]
     Route: 050
  8. TORVAST [Concomitant]
     Route: 048
  9. CONCOR                             /00802603/ [Concomitant]
     Route: 048
  10. PANTORC [Concomitant]
     Route: 048
  11. GARDENALE [Concomitant]
     Route: 048

REACTIONS (6)
  - AGITATION [None]
  - CONFUSIONAL STATE [None]
  - CONTRAST MEDIA REACTION [None]
  - DISORIENTATION [None]
  - DYSPHASIA [None]
  - POST PROCEDURAL COMPLICATION [None]
